FAERS Safety Report 23019677 (Version 1)
Quarter: 2023Q4

REPORT INFORMATION
  Report Type: Spontaneous
  Country: US (occurrence: US)
  Receive Date: 20231003
  Receipt Date: 20231003
  Transmission Date: 20240109
  Serious: No
  Sender: FDA-Public Use
  Company Number: US-BEH-2023163767

PATIENT
  Sex: Female

DRUGS (2)
  1. HIZENTRA [Suspect]
     Active Substance: HUMAN IMMUNOGLOBULIN G
     Indication: Chronic inflammatory demyelinating polyradiculoneuropathy
     Dosage: 50 GRAM, BIW
     Route: 065
     Dates: start: 2019
  2. HIZENTRA [Suspect]
     Active Substance: HUMAN IMMUNOGLOBULIN G
     Dosage: UNK
     Route: 065
     Dates: start: 20230917

REACTIONS (5)
  - Infusion site rash [Unknown]
  - Infusion site pruritus [Unknown]
  - Infusion site warmth [Unknown]
  - Infusion site swelling [Unknown]
  - Infusion site hypoaesthesia [Unknown]

NARRATIVE: CASE EVENT DATE: 20230901
